FAERS Safety Report 15680526 (Version 1)
Quarter: 2018Q4

REPORT INFORMATION
  Report Type: Report from Study
  Country: AU (occurrence: AU)
  Receive Date: 20181203
  Receipt Date: 20181203
  Transmission Date: 20190205
  Serious: Yes (Hospitalization)
  Sender: FDA-Public Use
  Company Number: AU-ACTELION-A-CH2018-176874

PATIENT
  Age: 48 Year
  Sex: Female

DRUGS (9)
  1. ILOPROST. [Concomitant]
     Active Substance: ILOPROST
     Indication: PULMONARY ARTERIAL HYPERTENSION
     Dosage: UNK
     Route: 048
     Dates: end: 20180725
  2. TRIMETAZIDINE [Concomitant]
     Active Substance: TRIMETAZIDINE
     Indication: MIXED CONNECTIVE TISSUE DISEASE
     Dosage: 150 MG, BID
     Route: 048
     Dates: start: 201807
  3. TARGIN [Concomitant]
     Active Substance: NALOXONE HYDROCHLORIDE\OXYCODONE HYDROCHLORIDE
     Indication: POLYARTHRITIS
  4. VELETRI [Suspect]
     Active Substance: EPOPROSTENOL
     Indication: PULMONARY ARTERIAL HYPERTENSION
     Dosage: 9 NG/KG, PER MIN
     Route: 042
     Dates: start: 20180726
  5. METHOTREXAT [Concomitant]
     Active Substance: METHOTREXATE
     Indication: MIXED CONNECTIVE TISSUE DISEASE
  6. SUCRALFATE. [Concomitant]
     Active Substance: SUCRALFATE
     Indication: MIXED CONNECTIVE TISSUE DISEASE
     Dosage: UNK, BID
  7. OPSUMIT [Suspect]
     Active Substance: MACITENTAN
     Indication: PULMONARY ARTERIAL HYPERTENSION
     Dosage: 10 MG, QD
     Route: 048
     Dates: start: 20170505
  8. SILDENAFIL. [Concomitant]
     Active Substance: SILDENAFIL
     Indication: PULMONARY ARTERIAL HYPERTENSION
     Dosage: UNK, TID
     Route: 048
  9. DOMPERIDONE [Concomitant]
     Active Substance: DOMPERIDONE
     Indication: MIXED CONNECTIVE TISSUE DISEASE
     Dosage: 10 MG, TID
     Route: 048
     Dates: start: 201807

REACTIONS (6)
  - Haemodynamic instability [Unknown]
  - Fluid intake restriction [Unknown]
  - Pulmonary arterial hypertension [Unknown]
  - Lethargy [Unknown]
  - Dyspnoea [Recovered/Resolved]
  - Condition aggravated [Unknown]

NARRATIVE: CASE EVENT DATE: 20180709
